FAERS Safety Report 7988990-1 (Version None)
Quarter: 2011Q4

REPORT INFORMATION
  Report Type: 
  Country: None (occurrence: None)
  Receive Date: 20111219
  Receipt Date: 20111209
  Transmission Date: 20120403
  Serious: Yes (Hospitalization)
  Sender: FDA-Public Use
  Company Number: PHEH2011US011426

PATIENT
  Sex: Female

DRUGS (8)
  1. ATENOLOL [Concomitant]
  2. EXJADE [Suspect]
     Indication: MYELODYSPLASTIC SYNDROME
     Dosage: 750 MG, DAILY
     Route: 048
     Dates: start: 20100521
  3. CALCITRIOL [Concomitant]
  4. CLONIDINE [Concomitant]
  5. AMLODIPINE BESYLATE [Concomitant]
  6. CALCIUM [Concomitant]
  7. EXTRA STRENGTH TYLENOL [Concomitant]
  8. ARANESP [Concomitant]

REACTIONS (1)
  - PNEUMONIA [None]
